FAERS Safety Report 8574840-1 (Version None)
Quarter: 2012Q2

REPORT INFORMATION
  Report Type: 
  Country: None (occurrence: None)
  Receive Date: 20120423
  Receipt Date: 20091110
  Transmission Date: 20120825
  Serious: Yes (Other)
  Sender: FDA-Public Use
  Company Number: PHEH2009US08457

PATIENT
  Sex: Male

DRUGS (2)
  1. ANTIBIOTICS (NO INGREDIENTS/SUBSTANCES) [Concomitant]
  2. EXJADE [Suspect]
     Indication: PANCYTOPENIA
     Dosage: 1000 MG/DAY, ORAL
     Route: 048
     Dates: start: 20071226, end: 20090630

REACTIONS (3)
  - NAUSEA [None]
  - DEAFNESS [None]
  - DIARRHOEA [None]
